FAERS Safety Report 12431008 (Version 1)
Quarter: 2016Q2

REPORT INFORMATION
  Report Type: Spontaneous
  Country: US (occurrence: US)
  Receive Date: 20160603
  Receipt Date: 20160603
  Transmission Date: 20160815
  Serious: Yes (Hospitalization)
  Sender: FDA-Public Use
  Company Number: US-ROCHE-1767361

PATIENT
  Sex: Female

DRUGS (1)
  1. RITUXAN [Suspect]
     Active Substance: RITUXIMAB
     Indication: PRODUCT USED FOR UNKNOWN INDICATION
     Route: 065

REACTIONS (7)
  - Paraesthesia [Unknown]
  - Tremor [Unknown]
  - Papilloedema [Unknown]
  - Asthenia [Unknown]
  - Pain [Unknown]
  - Depressed mood [Unknown]
  - Treatment failure [Unknown]

NARRATIVE: CASE EVENT DATE: 201605
